FAERS Safety Report 25572688 (Version 1)
Quarter: 2025Q3

REPORT INFORMATION
  Report Type: Report from Study
  Country: US (occurrence: US)
  Receive Date: 20250717
  Receipt Date: 20250717
  Transmission Date: 20251021
  Serious: No
  Sender: MARINUS PHARMACEUTICALS
  Company Number: US-MARINUS PHARMACEUTICALS, INC.-MAR2025000139

PATIENT

DRUGS (1)
  1. GANAXOLONE [Suspect]
     Active Substance: GANAXOLONE
     Indication: Product used for unknown indication
     Route: 048

REACTIONS (1)
  - Foaming at mouth [Unknown]

NARRATIVE: CASE EVENT DATE: 20250101
